FAERS Safety Report 9850263 (Version 1)
Quarter: 2014Q1

REPORT INFORMATION
  Report Type: Spontaneous
  Country: US (occurrence: None)
  Receive Date: 20140127
  Receipt Date: 20140127
  Transmission Date: 20141002
  Serious: Yes (Death)
  Sender: FDA-Public Use
  Company Number: None

PATIENT
  Age: 43 Year
  Sex: Male
  Weight: 104 kg

DRUGS (2)
  1. WARFARIN [Suspect]
     Route: 048
  2. ASPIRIN [Suspect]
     Route: 048

REACTIONS (5)
  - Sepsis [None]
  - Haemorrhagic stroke [None]
  - Diabetic ketoacidosis [None]
  - Renal failure acute [None]
  - Cardio-respiratory arrest [None]
